FAERS Safety Report 4576545-0 (Version None)
Quarter: 2005Q1

REPORT INFORMATION
  Report Type: 
  Country: None (occurrence: None)
  Receive Date: 20050119
  Receipt Date: 20040319
  Transmission Date: 20050727
  Serious: Yes (Hospitalization)
  Sender: FDA-Public Use
  Company Number: A03200400898

PATIENT
  Age: 72 Year
  Sex: Male
  Weight: 104.3273 kg

DRUGS (2)
  1. PLAVIX [Suspect]
     Indication: CORONARY ARTERY SURGERY
     Dosage: 75 MG QD - ORAL
     Route: 048
     Dates: start: 20030101, end: 20040101
  2. GLYCERYL TRINITRATE [Concomitant]

REACTIONS (2)
  - CEREBROVASCULAR ACCIDENT [None]
  - DIVERTICULUM INTESTINAL HAEMORRHAGIC [None]
